FAERS Safety Report 5615351-2 (Version None)
Quarter: 2008Q1

REPORT INFORMATION
  Report Type: 
  Country: None (occurrence: None)
  Receive Date: 20080206
  Receipt Date: 20080204
  Transmission Date: 20080703
  Serious: Yes (Hospitalization, Other)
  Sender: FDA-Public Use
  Company Number: US-BRISTOL-MYERS SQUIBB COMPANY-14056097

PATIENT
  Age: 59 Year
  Sex: Female

DRUGS (5)
  1. ORENCIA [Suspect]
     Indication: RHEUMATOID ARTHRITIS
  2. METHOTREXATE [Concomitant]
  3. METHYLPREDNISOLONE [Concomitant]
  4. OXYCODONE HCL [Concomitant]
     Indication: PAIN
  5. CHANTIX [Concomitant]
     Indication: PAIN

REACTIONS (2)
  - CRYPTOGENIC ORGANISING PNEUMONIA [None]
  - NODULE [None]
